FAERS Safety Report 7831061-5 (Version None)
Quarter: 2011Q4

REPORT INFORMATION
  Report Type: 
  Country: None (occurrence: None)
  Receive Date: 20111021
  Receipt Date: 20111017
  Transmission Date: 20120403
  Serious: Yes (Death, Hospitalization, Other)
  Sender: FDA-Public Use
  Company Number: PHHY2011JP63612

PATIENT
  Sex: Female

DRUGS (11)
  1. TS 1 [Concomitant]
  2. PACLITAXEL [Concomitant]
     Indication: INFLAMMATORY CARCINOMA OF BREAST STAGE III
  3. CAPECITABINE [Concomitant]
     Indication: INFLAMMATORY CARCINOMA OF BREAST STAGE III
  4. VINORELBINE [Concomitant]
  5. CYCLOPHOSPHAMIDE [Concomitant]
     Indication: INFLAMMATORY CARCINOMA OF BREAST STAGE III
  6. TRASTUZUMAB [Concomitant]
     Indication: INFLAMMATORY CARCINOMA OF BREAST STAGE III
  7. ZOMETA [Suspect]
     Indication: METASTASES TO BONE
     Route: 041
  8. FLUOROURACIL [Concomitant]
     Indication: INFLAMMATORY CARCINOMA OF BREAST STAGE III
  9. DOCETAXEL [Concomitant]
     Indication: INFLAMMATORY CARCINOMA OF BREAST STAGE III
  10. TEGAFUR [Concomitant]
  11. TRASTUZUMAB [Concomitant]

REACTIONS (7)
  - INFECTED SKIN ULCER [None]
  - PURULENCE [None]
  - LEUKOPENIA [None]
  - NEOPLASM PROGRESSION [None]
  - NEOPLASM MALIGNANT [None]
  - GENERAL PHYSICAL HEALTH DETERIORATION [None]
  - HAEMORRHAGE [None]
